FAERS Safety Report 7247483-X (Version None)
Quarter: 2011Q1

REPORT INFORMATION
  Report Type: 
  Country: None (occurrence: None)
  Receive Date: 20110127
  Receipt Date: 20110117
  Transmission Date: 20110831
  Serious: Yes (Other)
  Sender: FDA-Public Use
  Company Number: JP-BRISTOL-MYERS SQUIBB COMPANY-15494222

PATIENT
  Sex: Male

DRUGS (3)
  1. PACLITAXEL [Suspect]
     Indication: PROSTATE CANCER
     Dosage: INJ.
     Route: 042
  2. PARAPLATIN [Suspect]
     Indication: PROSTATE CANCER
     Dosage: 1 DF= AUC=6 ONCE MONTHLY.
     Route: 042
  3. ESTRAMUSTINE [Suspect]
     Indication: PROSTATE CANCER
     Dosage: CAP.
     Route: 048

REACTIONS (2)
  - HEPATIC FUNCTION ABNORMAL [None]
  - PERIPHERAL SENSORY NEUROPATHY [None]
